FAERS Safety Report 7483507-2 (Version None)
Quarter: 2011Q2

REPORT INFORMATION
  Report Type: 
  Country: None (occurrence: None)
  Receive Date: 20110517
  Receipt Date: 20110509
  Transmission Date: 20111010
  Serious: Yes (Other)
  Sender: FDA-Public Use
  Company Number: US-JNJFOC-20110504348

PATIENT
  Sex: Female

DRUGS (1)
  1. ORTHO CYCLEN-28 [Suspect]
     Indication: PRODUCT USED FOR UNKNOWN INDICATION
     Route: 048
     Dates: start: 20110505

REACTIONS (2)
  - ASTHENIA [None]
  - SYNCOPE [None]
